FAERS Safety Report 23501597 (Version 1)
Quarter: 2024Q1

REPORT INFORMATION
  Report Type: Spontaneous
  Country: US (occurrence: None)
  Receive Date: 20240208
  Receipt Date: 20240208
  Transmission Date: 20240410
  Serious: Yes (Other)
  Sender: FDA-Public Use
  Company Number: 2024A025862

PATIENT

DRUGS (1)
  1. FASENRA [Suspect]
     Active Substance: BENRALIZUMAB
     Dosage: 30.0MG UNKNOWN
     Route: 058

REACTIONS (7)
  - Neoplasm malignant [Unknown]
  - Chronic kidney disease [Unknown]
  - Headache [Unknown]
  - Limb injury [Unknown]
  - Arthritis [Unknown]
  - Exostosis [Unknown]
  - Home care [Unknown]
